FAERS Safety Report 7513810-9 (Version None)
Quarter: 2011Q2

REPORT INFORMATION
  Report Type: 
  Country: None (occurrence: None)
  Receive Date: 20110531
  Receipt Date: 20110518
  Transmission Date: 20111010
  Serious: Yes (Hospitalization)
  Sender: FDA-Public Use
  Company Number: US-UCBSA-027731

PATIENT
  Sex: Female
  Weight: 56.8 kg

DRUGS (2)
  1. CIMZIA [Suspect]
     Indication: CROHN'S DISEASE
     Route: 058
     Dates: start: 20090602
  2. CIMZIA [Suspect]
     Route: 058

REACTIONS (3)
  - HIP FRACTURE [None]
  - FALL [None]
  - SYNCOPE [None]
